FAERS Safety Report 13365347 (Version 1)
Quarter: 2017Q1

REPORT INFORMATION
  Report Type: Spontaneous
  Country: NO (occurrence: NO)
  Receive Date: 20170323
  Receipt Date: 20170323
  Transmission Date: 20170429
  Serious: Yes (Other)
  Sender: FDA-Public Use
  Company Number: NO-PFIZER INC-2017124352

PATIENT
  Age: 52 Year
  Sex: Female

DRUGS (1)
  1. LYRICA [Suspect]
     Active Substance: PREGABALIN
     Dosage: 75 MG, 2X/DAY, MORNING AND EVENING

REACTIONS (7)
  - Oedema peripheral [Unknown]
  - Odynophagia [Unknown]
  - Oropharyngeal pain [Unknown]
  - Angina pectoris [Unknown]
  - Chest discomfort [Unknown]
  - Insomnia [Unknown]
  - Constipation [Unknown]
